FAERS Safety Report 21836838 (Version 2)
Quarter: 2023Q2

REPORT INFORMATION
  Report Type: Report from Study
  Country: US (occurrence: US)
  Receive Date: 20230109
  Receipt Date: 20230614
  Transmission Date: 20230722
  Serious: Yes (Other)
  Sender: FDA-Public Use
  Company Number: US-ARGENX-2022-ARGX-US002750

PATIENT
  Sex: Male
  Weight: 112.93 kg

DRUGS (1)
  1. VYVGART [Suspect]
     Active Substance: EFGARTIGIMOD ALFA-FCAB
     Indication: Myasthenia gravis
     Dosage: UNK
     Route: 042

REACTIONS (4)
  - Adrenal gland cancer [Unknown]
  - Metastases to lung [Unknown]
  - Fatigue [Unknown]
  - Monoplegia [Unknown]
